FAERS Safety Report 12872465 (Version 4)
Quarter: 2021Q3

REPORT INFORMATION
  Report Type: Spontaneous
  Country: US (occurrence: US)
  Receive Date: 20161021
  Receipt Date: 20210819
  Transmission Date: 20211014
  Serious: No
  Sender: FDA-Public Use
  Company Number: US-LUPIN PHARMACEUTICALS INC.-E2B_00006045

PATIENT
  Sex: Female
  Weight: 97.51 kg

DRUGS (2)
  1. METOPROLOL. [Concomitant]
     Active Substance: METOPROLOL
     Indication: HYPERTENSION
     Dosage: UNK UNK,UNK,UNKNOWN
     Route: 065
  2. LISINOPRIL AND HYDROCHLOROTHIAZIDE [Suspect]
     Active Substance: HYDROCHLOROTHIAZIDE\LISINOPRIL
     Indication: HYPERTENSION
     Dosage: 1 DF, QD
     Route: 048
     Dates: start: 20151207, end: 20160730

REACTIONS (16)
  - Alopecia [Unknown]
  - Sleep disorder [Unknown]
  - Bone pain [Unknown]
  - Metamorphopsia [Unknown]
  - Dry eye [Unknown]
  - Dry mouth [Unknown]
  - Dehydration [Unknown]
  - Abdominal distension [Unknown]
  - Depressed mood [Unknown]
  - Anger [Unknown]
  - Tooth extraction [Unknown]
  - Asthenia [Unknown]
  - Vascular compression [Unknown]
  - Drug interaction [Unknown]
  - Vertigo [Unknown]
  - Depression [Unknown]
